FAERS Safety Report 9057643 (Version 1)
Quarter: 2013Q1

REPORT INFORMATION
  Report Type: Spontaneous
  Country: US (occurrence: US)
  Receive Date: 20130204
  Receipt Date: 20130204
  Transmission Date: 20140127
  Serious: No
  Sender: FDA-Public Use
  Company Number: US-PFIZER INC-2013044779

PATIENT
  Age: 63 Year
  Sex: Female
  Weight: 77.1 kg

DRUGS (2)
  1. LYRICA [Suspect]
     Indication: FIBROMYALGIA
     Dosage: 100 MG, 3X/DAY
     Route: 048
  2. BACLOFEN [Concomitant]
     Indication: MUSCLE SPASMS
     Dosage: UNK

REACTIONS (8)
  - Hyperaesthesia [Unknown]
  - Vertigo [Unknown]
  - Fall [Unknown]
  - Balance disorder [Unknown]
  - Skin disorder [Unknown]
  - Burning sensation [Unknown]
  - Headache [Unknown]
  - Skin reaction [Unknown]
